FAERS Safety Report 25221351 (Version 1)
Quarter: 2025Q2

REPORT INFORMATION
  Report Type: Spontaneous
  Country: US (occurrence: US)
  Receive Date: 20250421
  Receipt Date: 20250421
  Transmission Date: 20250717
  Serious: No
  Sender: UCB
  Company Number: US-UCBSA-2024061030

PATIENT
  Age: 36 Year
  Sex: Male

DRUGS (1)
  1. NEUPRO [Suspect]
     Active Substance: ROTIGOTINE
     Indication: Product used for unknown indication
     Dates: start: 20200311

REACTIONS (2)
  - Hiccups [Unknown]
  - Vertigo positional [Recovered/Resolved]

NARRATIVE: CASE EVENT DATE: 20240801
